FAERS Safety Report 4753370-9 (Version None)
Quarter: 2005Q3

REPORT INFORMATION
  Report Type: 
  Country: None (occurrence: None)
  Receive Date: 20050824
  Receipt Date: 20050808
  Transmission Date: 20060218
  Serious: Yes (Other)
  Sender: FDA-Public Use
  Company Number: PHEH2005US03016

PATIENT
  Age: 72 Year
  Sex: Female

DRUGS (13)
  1. VISUDYNE [Suspect]
     Indication: MACULAR DEGENERATION
     Dates: start: 20041210, end: 20041210
  2. CYTOMEL [Concomitant]
  3. METOPROLOL [Concomitant]
  4. ASPIRIN [Concomitant]
  5. PREMPRO [Concomitant]
  6. NORVASC [Concomitant]
  7. VITAMIN D [Concomitant]
  8. OCUVITE [Concomitant]
  9. TYLENOL [Concomitant]
  10. MAGNESIUM [Concomitant]
  11. ZINC [Concomitant]
  12. METAREL [Concomitant]
  13. FLUOCIM [Concomitant]

REACTIONS (2)
  - CUTANEOUS LUPUS ERYTHEMATOSUS [None]
  - PHOTOSENSITIVITY REACTION [None]
